FAERS Safety Report 8605349-4 (Version None)
Quarter: 2012Q3

REPORT INFORMATION
  Report Type: 
  Country: None (occurrence: None)
  Receive Date: 20120820
  Receipt Date: 20120809
  Transmission Date: 20120928
  Serious: Yes (Hospitalization)
  Sender: FDA-Public Use
  Company Number: BR-SANOFI-AVENTIS-2012SA057445

PATIENT
  Age: 0 Day
  Sex: Female
  Weight: 2.23 kg

DRUGS (1)
  1. ENOXAPARIN SODIUM [Suspect]
     Dosage: 3 OR 4 TIMES OF FOETAL EXPOSURE
     Route: 064
     Dates: start: 20120221

REACTIONS (2)
  - PREMATURE BABY [None]
  - MATERNAL EXPOSURE DURING PREGNANCY [None]
